FAERS Safety Report 10203035 (Version 1)
Quarter: 2014Q2

REPORT INFORMATION
  Report Type: Spontaneous
  Country: ES (occurrence: ES)
  Receive Date: 20140529
  Receipt Date: 20140529
  Transmission Date: 20141212
  Serious: Yes (Other)
  Sender: FDA-Public Use
  Company Number: ES-INDICUS PHARMA-000257

PATIENT
  Age: 68 Year
  Sex: Female

DRUGS (13)
  1. LETROZOLE [Suspect]
     Indication: INVASIVE DUCTAL BREAST CARCINOMA
  2. TIMOLOL [Concomitant]
  3. CYANOCOBALAMIN [Concomitant]
  4. ENALAPRIL MALEATE/HYDROCHLOROTHIAZIDE [Concomitant]
  5. CLOPIXOL [Interacting]
     Indication: SCHIZOPHRENIA, PARANOID TYPE
     Dosage: CLOPIXOL DEPOT 200 MG/14 DAYS
  6. INSULIN GLARGINE [Concomitant]
  7. BRINZOLAMIDE [Concomitant]
  8. SENNOSIDE A+B [Concomitant]
  9. QUETIAPINE (GENERIC) (QUETIAPINE FUMARATE) [Suspect]
     Indication: SCHIZOPHRENIA, PARANOID TYPE
  10. ALPRAZOLAM [Suspect]
     Indication: SCHIZOPHRENIA, PARANOID TYPE
  11. METFORMIN [Concomitant]
  12. PARACETAMOL [Concomitant]
  13. PRAVASTATIN [Concomitant]

REACTIONS (6)
  - Salivary hypersecretion [Recovered/Resolved]
  - Sedation [Recovered/Resolved]
  - Dysphagia [Recovered/Resolved]
  - Lethargy [Recovered/Resolved]
  - Drug interaction [Unknown]
  - Extrapyramidal disorder [Recovered/Resolved]
